FAERS Safety Report 6194279-6 (Version None)
Quarter: 2009Q2

REPORT INFORMATION
  Report Type: 
  Country: None (occurrence: None)
  Receive Date: 20090519
  Receipt Date: 20090518
  Transmission Date: 20091009
  Serious: Yes (Hospitalization)
  Sender: FDA-Public Use
  Company Number: FR-WYE-G03655409

PATIENT
  Age: 18 Month
  Sex: Female

DRUGS (1)
  1. ADVIL [Suspect]
     Indication: VARICELLA
     Dosage: UNKNOWN
     Route: 048
     Dates: start: 20030101

REACTIONS (1)
  - RENAL FAILURE [None]
